FAERS Safety Report 6914390-9 (Version None)
Quarter: 2010Q3

REPORT INFORMATION
  Report Type: 
  Country: None (occurrence: None)
  Receive Date: 20100805
  Receipt Date: 20100805
  Transmission Date: 20110219
  Serious: Yes (Hospitalization)
  Sender: FDA-Public Use
  Company Number: None

PATIENT
  Sex: Male
  Weight: 173.2287 kg

DRUGS (11)
  1. TELAVANCIN HYDROCHLORIDE [Suspect]
     Indication: CELLULITIS
     Dosage: 750MG Q24H IV
     Route: 042
     Dates: start: 20100331, end: 20100414
  2. TELAVANCIN HYDROCHLORIDE [Suspect]
     Dosage: 250MG Q24H IV
     Route: 042
     Dates: start: 20100331, end: 20100414
  3. LIPITOR [Concomitant]
  4. AMARYL [Concomitant]
  5. PROTONIX [Concomitant]
  6. POTASSIUM [Concomitant]
  7. NEURONTIN [Concomitant]
  8. ZOFRAN [Concomitant]
  9. SONATA [Concomitant]
  10. COLACE [Concomitant]
  11. DULCOLAX [Concomitant]

REACTIONS (4)
  - ASTHENIA [None]
  - BACTERIAL SEPSIS [None]
  - RENAL FAILURE ACUTE [None]
  - SHOCK [None]
